FAERS Safety Report 5588037-0 (Version None)
Quarter: 2008Q1

REPORT INFORMATION
  Report Type: 
  Country: None (occurrence: None)
  Receive Date: 20080111
  Receipt Date: 20071228
  Transmission Date: 20080703
  Serious: Yes (Other)
  Sender: FDA-Public Use
  Company Number: US-PFIZER INC-2007090231

PATIENT
  Sex: Male

DRUGS (2)
  1. CHANTIX [Suspect]
  2. NEXIUM [Concomitant]

REACTIONS (6)
  - ANXIETY DISORDER [None]
  - CONVULSION [None]
  - HEADACHE [None]
  - LOSS OF CONSCIOUSNESS [None]
  - MYOCLONUS [None]
  - STRESS [None]
